FAERS Safety Report 23485453 (Version 1)
Quarter: 2024Q1

REPORT INFORMATION
  Report Type: Spontaneous
  Country: US (occurrence: US)
  Receive Date: 20240206
  Receipt Date: 20240206
  Transmission Date: 20240409
  Serious: No
  Sender: FDA-Public Use
  Company Number: US-SANOFI-01923213

PATIENT
  Age: 86 Year
  Sex: Male

DRUGS (1)
  1. LOVENOX [Suspect]
     Active Substance: ENOXAPARIN SODIUM
     Indication: Deep vein thrombosis
     Dosage: 60 MG, BID
     Dates: start: 20240124

REACTIONS (1)
  - Renal pain [Unknown]

NARRATIVE: CASE EVENT DATE: 20240125
